FAERS Safety Report 5416534-7 (Version None)
Quarter: 2007Q3

REPORT INFORMATION
  Report Type: 
  Country: None (occurrence: None)
  Receive Date: 20070815
  Receipt Date: 20070815
  Transmission Date: 20080115
  Serious: Yes (Hospitalization)
  Sender: FDA-Public Use
  Company Number: None

PATIENT
  Sex: Female
  Weight: 93.441 kg

DRUGS (4)
  1. NEXAVAR [Suspect]
     Indication: COLON CANCER METASTATIC
     Dosage: 400MG BID BID PO
     Route: 048
     Dates: start: 20070710, end: 20070801
  2. CPT-11 273MG [Suspect]
     Indication: COLON CANCER METASTATIC
     Dosage: 273MG WEEKLY X4, OFF 2 WKS IV
     Route: 042
     Dates: start: 20070723
  3. TRICOR [Concomitant]
  4. PRAVACHOL [Concomitant]

REACTIONS (2)
  - DYSPEPSIA [None]
  - PANCREATITIS ACUTE [None]
